FAERS Safety Report 6037486-5 (Version None)
Quarter: 2009Q1

REPORT INFORMATION
  Report Type: 
  Country: None (occurrence: None)
  Receive Date: 20090114
  Receipt Date: 20090105
  Transmission Date: 20090719
  Serious: Yes (Hospitalization)
  Sender: FDA-Public Use
  Company Number: US-ELI_LILLY_AND_COMPANY-US200808005607

PATIENT
  Age: 55 Year
  Sex: Male

DRUGS (12)
  1. BYETTA [Suspect]
     Dosage: 5 UG, 2/D
     Route: 058
     Dates: start: 20070101, end: 20070101
  2. BYETTA [Suspect]
     Dosage: 10 UG, 2/D
     Route: 058
     Dates: start: 20070101, end: 20070101
  3. BYETTA [Suspect]
     Dosage: 5 UG, 2/D
     Dates: start: 20070101, end: 20080811
  4. NORVASC [Concomitant]
  5. IMDUR [Concomitant]
  6. ASPIRIN [Concomitant]
  7. METFORMIN HCL [Concomitant]
  8. ZOCOR [Concomitant]
  9. CELEBREX [Concomitant]
  10. LISINOPRIL [Concomitant]
  11. HYDROCHLOROTHIAZIDE [Concomitant]
  12. ATENOLOL [Concomitant]

REACTIONS (1)
  - PANCREATITIS [None]
